FAERS Safety Report 16876903 (Version 1)
Quarter: 2019Q4

REPORT INFORMATION
  Report Type: Report from Study
  Country: US (occurrence: US)
  Receive Date: 20191002
  Receipt Date: 20191002
  Transmission Date: 20200122
  Serious: Yes (Hospitalization, Other)
  Sender: FDA-Public Use
  Company Number: US-JNJFOC-20190939427

PATIENT
  Age: 79 Year
  Sex: Male

DRUGS (20)
  1. ASPIRIN                            /00002701/ [Concomitant]
     Active Substance: ASPIRIN
  2. DIGOXIN. [Concomitant]
     Active Substance: DIGOXIN
  3. FUROSEMIDE. [Concomitant]
     Active Substance: FUROSEMIDE
  4. QUINAPRIL. [Concomitant]
     Active Substance: QUINAPRIL
  5. VITAMIN B12 [Concomitant]
     Active Substance: CYANOCOBALAMIN
  6. LEVEMIR [Concomitant]
     Active Substance: INSULIN DETEMIR
  7. LEVOTHYROXINE. [Concomitant]
     Active Substance: LEVOTHYROXINE
  8. NITROGLYCERIN. [Concomitant]
     Active Substance: NITROGLYCERIN
  9. POTASSIUM CHLORIDE. [Concomitant]
     Active Substance: POTASSIUM CHLORIDE
  10. AMIODARONE [Concomitant]
     Active Substance: AMIODARONE
  11. CARVEDILOL. [Concomitant]
     Active Substance: CARVEDILOL
  12. MULTIVITAMINS                      /00116001/ [Concomitant]
     Active Substance: VITAMINS
  13. ZOFRAN [Concomitant]
     Active Substance: ONDANSETRON HYDROCHLORIDE
  14. CHOLECALCIFEROL [Concomitant]
     Active Substance: CHOLECALCIFEROL
  15. TRADJENTA [Concomitant]
     Active Substance: LINAGLIPTIN
  16. IMBRUVICA [Suspect]
     Active Substance: IBRUTINIB
     Indication: CHRONIC LYMPHOCYTIC LEUKAEMIA
     Dosage: 420 MG, QD
     Route: 048
     Dates: start: 20190603, end: 20190916
  17. ELIQUIS [Concomitant]
     Active Substance: APIXABAN
  18. PIOGLITAZONE. [Concomitant]
     Active Substance: PIOGLITAZONE
  19. ROSUVASTATIN. [Concomitant]
     Active Substance: ROSUVASTATIN
  20. SPIRONOLACTONE. [Concomitant]
     Active Substance: SPIRONOLACTONE

REACTIONS (11)
  - Blood glucose increased [Unknown]
  - Renal failure [Unknown]
  - Adverse event [Not Recovered/Not Resolved]
  - Vomiting [Unknown]
  - Fall [Unknown]
  - Gait disturbance [Unknown]
  - Haemorrhage [Unknown]
  - Hypotension [Unknown]
  - Nausea [Unknown]
  - Head injury [Unknown]
  - Fatigue [Unknown]

NARRATIVE: CASE EVENT DATE: 2019
